FAERS Safety Report 5093124-X (Version None)
Quarter: 2006Q3

REPORT INFORMATION
  Report Type: 
  Country: None (occurrence: None)
  Receive Date: 20060830
  Receipt Date: 20051230
  Transmission Date: 20061208
  Serious: Yes (Death, Hospitalization)
  Sender: FDA-Public Use
  Company Number: TH-ROCHE-430169

PATIENT
  Age: 64 Year
  Sex: Female
  Weight: 51.1 kg

DRUGS (4)
  1. CAPECITABINE [Suspect]
     Dosage: GIVEN FOR TWO WEEKS OUT OF EVERY THREE-WEEK CYCLE.
     Route: 048
     Dates: start: 20050928, end: 20060123
  2. AVASTIN [Suspect]
     Route: 042
     Dates: start: 20050928, end: 20060123
  3. OXALIPLATIN [Suspect]
     Dosage: GIVEN ON DAY 1 OF EVERY THREE-WEEK CYCLE.
     Route: 042
     Dates: start: 20050928, end: 20060123
  4. ENALAPRIL [Concomitant]
     Dates: start: 20030101

REACTIONS (12)
  - AMOEBIASIS [None]
  - BRONCHOSPASM [None]
  - CARDIAC ARREST [None]
  - DIARRHOEA [None]
  - FEBRILE NEUTROPENIA [None]
  - HAEMATOCRIT DECREASED [None]
  - HAEMOGLOBIN DECREASED [None]
  - HEART RATE INCREASED [None]
  - PLATELET COUNT DECREASED [None]
  - RENAL FAILURE [None]
  - STREPTOCOCCAL INFECTION [None]
  - WHITE BLOOD CELL COUNT DECREASED [None]
